FAERS Safety Report 8199577 (Version 8)
Quarter: 2014Q1

REPORT INFORMATION
  Report Type: Report from Study
  Country: DE (occurrence: DE)
  Receive Date: 20111025
  Receipt Date: 20140116
  Transmission Date: 20141002
  Serious: Yes (Death, Hospitalization, Other)
  Sender: FDA-Public Use
  Company Number: DE-ASTELLAS-2011US006991

PATIENT
  Age: 61 Year
  Sex: Female
  Weight: 64 kg

DRUGS (11)
  1. ERLOTINIB TABLET [Suspect]
     Indication: PANCREATIC CARCINOMA
     Dosage: 100 MG, TID
     Route: 048
     Dates: start: 20110614, end: 20110909
  2. GEMCITABINE [Suspect]
     Indication: PANCREATIC CARCINOMA
     Dosage: 1000 MG/M2; 28 DAY CYCLE (1816 MG, D1, D8 AND D15)
     Route: 065
  3. GEMCITABINE [Suspect]
     Dosage: 1816 IU, CYCLIC, DAYS 1,8 + 15
     Route: 065
     Dates: start: 20110614, end: 20110906
  4. PREDNISOLON [Concomitant]
     Indication: RHEUMATOID ARTHRITIS
     Dosage: 5 MG, UNKNOWN/D
     Route: 065
     Dates: start: 20110609
  5. KREON [Concomitant]
     Indication: DYSPEPSIA
     Dosage: UNK
     Route: 065
     Dates: start: 20110609
  6. TARGIN [Concomitant]
     Indication: PRODUCT USED FOR UNKNOWN INDICATION
     Dosage: 40 MG, UNKNOWN/D
     Route: 065
     Dates: start: 20110609
  7. PANTOZAL [Concomitant]
     Indication: PROPHYLAXIS AGAINST GASTROINTESTINAL ULCER
     Dosage: 40 MG, UNKNOWN/D
     Route: 065
     Dates: start: 20110609
  8. DIPYRONE [Concomitant]
     Indication: PAIN
     Dosage: 160 DROPS, UID/QD
     Route: 065
     Dates: start: 20110609
  9. QUENSYL [Concomitant]
     Indication: RHEUMATOID ARTHRITIS
     Dosage: UNK
     Route: 065
  10. NOVALGINE [Concomitant]
     Indication: PRODUCT USED FOR UNKNOWN INDICATION
     Dosage: 160 UNK, DROPS/DAY
     Route: 065
     Dates: start: 20110609
  11. EGFR INHIBITORS [Concomitant]
     Indication: PRODUCT USED FOR UNKNOWN INDICATION
     Dosage: UNK
     Route: 065

REACTIONS (11)
  - Overdose [Unknown]
  - Intussusception [Recovering/Resolving]
  - Glomerulonephropathy [Unknown]
  - Suture related complication [Unknown]
  - Haemoglobin decreased [Unknown]
  - Pleural effusion [Unknown]
  - Gastric ulcer [Unknown]
  - Renal failure acute [Unknown]
  - Gastric perforation [Recovering/Resolving]
  - Thrombotic microangiopathy [Fatal]
  - Vasculitis [Recovered/Resolved]
